FAERS Safety Report 9773982 (Version 3)
Quarter: 2014Q1

REPORT INFORMATION
  Report Type: Spontaneous
  Country: US (occurrence: US)
  Receive Date: 20131220
  Receipt Date: 20140116
  Transmission Date: 20141002
  Serious: Yes (Hospitalization)
  Sender: FDA-Public Use
  Company Number: US-BIOGENIDEC-2013BI120675

PATIENT
  Age: 43 Year
  Sex: Male

DRUGS (9)
  1. AVONEX [Suspect]
     Indication: MULTIPLE SCLEROSIS
     Route: 030
     Dates: start: 20020626
  2. AVONEX [Suspect]
     Indication: MULTIPLE SCLEROSIS
     Route: 030
     Dates: end: 2012
  3. AVONEX [Suspect]
     Indication: MULTIPLE SCLEROSIS
     Route: 030
     Dates: start: 2012, end: 20130924
  4. AVONEX [Suspect]
     Indication: MULTIPLE SCLEROSIS
     Route: 030
     Dates: start: 20130924
  5. AVONEX [Suspect]
     Indication: MULTIPLE SCLEROSIS
     Route: 030
     Dates: start: 20131223
  6. OXYCODONE [Concomitant]
     Indication: HIP ARTHROPLASTY
     Dates: start: 201308
  7. HYDROCODONE [Concomitant]
     Indication: HIP ARTHROPLASTY
     Dates: start: 201308
  8. VISINE [Concomitant]
  9. THIMEROSAL [Concomitant]

REACTIONS (29)
  - Cardiac arrest [Recovered/Resolved]
  - Head injury [Recovered/Resolved]
  - Rib fracture [Not Recovered/Not Resolved]
  - Mobility decreased [Recovered/Resolved]
  - Dehydration [Recovered/Resolved]
  - Joint destruction [Recovered/Resolved]
  - Polyarthritis [Recovered/Resolved]
  - Osteonecrosis [Recovered/Resolved]
  - Fall [Recovered/Resolved]
  - Syncope [Recovered/Resolved]
  - Concussion [Recovered/Resolved]
  - Disturbance in attention [Recovered/Resolved]
  - Drug intolerance [Recovered/Resolved]
  - Periorbital contusion [Recovered/Resolved]
  - Facial bones fracture [Not Recovered/Not Resolved]
  - Apnoea [Recovered/Resolved]
  - Sinus congestion [Not Recovered/Not Resolved]
  - Spinal osteoarthritis [Not Recovered/Not Resolved]
  - Spondylitis [Not Recovered/Not Resolved]
  - Ocular hyperaemia [Recovered/Resolved]
  - Reaction to preservatives [Not Recovered/Not Resolved]
  - Seasonal allergy [Recovered/Resolved]
  - Sleep apnoea syndrome [Recovered/Resolved]
  - Neuralgia [Not Recovered/Not Resolved]
  - Peroneal nerve palsy [Not Recovered/Not Resolved]
  - Influenza like illness [Recovered/Resolved]
  - Musculoskeletal pain [Not Recovered/Not Resolved]
  - Pruritus [Not Recovered/Not Resolved]
  - Headache [Recovered/Resolved]
